FAERS Safety Report 4827942-7 (Version None)
Quarter: 2005Q4

REPORT INFORMATION
  Report Type: 
  Country: None (occurrence: None)
  Receive Date: 20051115
  Receipt Date: 20051102
  Transmission Date: 20060501
  Serious: Yes (Hospitalization)
  Sender: FDA-Public Use
  Company Number: FR-BOEHRINGER INGELHEIM PHARMACEUTICALS, INC.-2005-FF-00782FF

PATIENT
  Age: 85 Year
  Sex: Male

DRUGS (8)
  1. JOSIR [Suspect]
     Route: 048
     Dates: end: 20051002
  2. DOMPERIDONE [Concomitant]
     Route: 048
     Dates: end: 20051004
  3. AERIUS [Concomitant]
     Route: 048
     Dates: end: 20051004
  4. SEROPLEX [Concomitant]
     Route: 048
     Dates: end: 20051002
  5. FUROSEMIDE [Concomitant]
     Route: 048
     Dates: end: 20051002
  6. OMEPRAZOLE [Concomitant]
     Route: 048
     Dates: end: 20051002
  7. COVERSYL [Concomitant]
  8. ZOPICLONE [Concomitant]

REACTIONS (1)
  - HYPONATRAEMIA [None]
